FAERS Safety Report 6583657-9 (Version None)
Quarter: 2010Q1

REPORT INFORMATION
  Report Type: 
  Country: None (occurrence: None)
  Receive Date: 20100213
  Receipt Date: 20100213
  Transmission Date: 20100710
  Serious: No
  Sender: FDA-Public Use
  Company Number: None

PATIENT
  Age: 53 Year
  Sex: Male
  Weight: 79.3795 kg

DRUGS (1)
  1. AVODART [Suspect]
     Indication: PROSTATIC SPECIFIC ANTIGEN INCREASED
     Dosage: 1 PER DAY PO
     Route: 048
     Dates: start: 20090717, end: 20100217

REACTIONS (1)
  - HYPERTENSION [None]
